FAERS Safety Report 6784316-X (Version None)
Quarter: 2010Q2

REPORT INFORMATION
  Report Type: 
  Country: None (occurrence: None)
  Receive Date: 20100617
  Receipt Date: 20100607
  Transmission Date: 20101027
  Serious: Yes (Other)
  Sender: FDA-Public Use
  Company Number: URSO-2010-060

PATIENT
  Age: 84 Year
  Sex: Male

DRUGS (4)
  1. URSODEOXYCHOLIC ACID 100 MG TABLETS [Suspect]
     Indication: CHOLELITHIASIS
     Dosage: 300 MG, ORAL
     Route: 048
     Dates: start: 20100402, end: 20100416
  2. OMEPRAZOLE [Suspect]
     Indication: REFLUX OESOPHAGITIS
     Dosage: 20 MG
     Route: 048
     Dates: start: 20100402, end: 20100416
  3. ACETAMINOPHEN [Suspect]
     Indication: DENTAL CARE
     Dosage: 100 MG
     Route: 048
     Dates: start: 20100301
  4. FLOMOX (CEFCAPENE PIVOXIL HYDROCHLORIDE) [Suspect]
     Indication: DENTAL CARE
     Dosage: 300 MG
     Route: 048
     Dates: start: 20100301

REACTIONS (6)
  - ABDOMINAL PAIN [None]
  - BRAIN NATRIURETIC PEPTIDE INCREASED [None]
  - DECREASED APPETITE [None]
  - MALAISE [None]
  - NAUSEA [None]
  - RENAL IMPAIRMENT [None]
